FAERS Safety Report 25972692 (Version 2)
Quarter: 2025Q4

REPORT INFORMATION
  Report Type: Spontaneous
  Country: US (occurrence: US)
  Receive Date: 20251029
  Receipt Date: 20251106
  Transmission Date: 20260117
  Serious: No
  Sender: AMGEN
  Company Number: US-AMGEN-USASP2025212083

PATIENT
  Age: 76 Year
  Sex: Female

DRUGS (2)
  1. ENBREL [Suspect]
     Active Substance: ETANERCEPT
     Indication: Product used for unknown indication
     Dosage: 50 MILLIGRAM, QWK
     Route: 065
     Dates: start: 2015
  2. METHOTREXATE [Concomitant]
     Active Substance: METHOTREXATE
     Dosage: UNK
     Route: 065

REACTIONS (4)
  - Device difficult to use [Unknown]
  - Skin exfoliation [Unknown]
  - Skin disorder [Recovered/Resolved]
  - Pruritus [Recovered/Resolved]
